FAERS Safety Report 14588601 (Version 6)
Quarter: 2018Q1

REPORT INFORMATION
  Report Type: Spontaneous
  Country: US (occurrence: US)
  Receive Date: 20180301
  Receipt Date: 20180320
  Transmission Date: 20180509
  Serious: Yes (Hospitalization, Other)
  Sender: FDA-Public Use
  Company Number: US-GLAXOSMITHKLINE-US2018GSK034037

PATIENT
  Age: 46 Year
  Sex: Female

DRUGS (3)
  1. WARFARIN [Concomitant]
     Active Substance: WARFARIN
  2. FLOLAN DILUENT PH 12 SOLUTION FOR INJECTION [Suspect]
     Active Substance: GLYCINE\MANNITOL\SODIUM CHLORIDE
     Indication: PULMONARY ARTERIAL HYPERTENSION
     Dosage: UNK
     Route: 042
     Dates: start: 20161205
  3. FLOLAN [Suspect]
     Active Substance: EPOPROSTENOL SODIUM
     Indication: PULMONARY ARTERIAL HYPERTENSION
     Dosage: 100 DF, CO
     Route: 042
     Dates: start: 20080731

REACTIONS (4)
  - Respiratory failure [Unknown]
  - Dyspnoea [Unknown]
  - Pneumonia [Unknown]
  - Gastrooesophageal reflux disease [Unknown]

NARRATIVE: CASE EVENT DATE: 20180226
